FAERS Safety Report 5393906-0 (Version None)
Quarter: 2007Q3

REPORT INFORMATION
  Report Type: 
  Country: None (occurrence: None)
  Receive Date: 20070723
  Receipt Date: 20061026
  Transmission Date: 20080115
  Serious: No
  Sender: FDA-Public Use
  Company Number: A0625092A

PATIENT
  Sex: Male

DRUGS (6)
  1. AVANDIA [Suspect]
     Dosage: 4MG PER DAY
     Route: 048
     Dates: start: 20061018
  2. METFORMIN HCL [Concomitant]
  3. GLIPIZIDE [Concomitant]
  4. CELEBREX [Concomitant]
  5. LIPITOR [Concomitant]
  6. ENALAPRIL MALEATE [Concomitant]

REACTIONS (3)
  - COLD SWEAT [None]
  - FATIGUE [None]
  - INSOMNIA [None]
